FAERS Safety Report 9922066 (Version 3)
Quarter: 2014Q1

REPORT INFORMATION
  Report Type: Spontaneous
  Country: US (occurrence: US)
  Receive Date: 20140225
  Receipt Date: 20140318
  Transmission Date: 20141002
  Serious: Yes (Hospitalization)
  Sender: FDA-Public Use
  Company Number: US-BAXTER-2014BAX008645

PATIENT
  Age: 44 Year
  Sex: Female

DRUGS (7)
  1. DIANEAL LOW CALCIUM [Suspect]
     Indication: RENAL FAILURE CHRONIC
     Route: 033
     Dates: start: 20110307
  2. DIANEAL LOW CALCIUM [Suspect]
     Route: 033
     Dates: start: 20110307
  3. DIANEAL LOW CALCIUM [Suspect]
     Route: 033
     Dates: start: 20110307
  4. DIANEAL LOW CALCIUM [Suspect]
     Indication: RENAL FAILURE CHRONIC
     Route: 033
     Dates: start: 20110307
  5. DIANEAL LOW CALCIUM [Suspect]
     Route: 033
     Dates: start: 20110307
  6. DIANEAL LOW CALCIUM [Suspect]
     Route: 033
     Dates: start: 20110307
  7. DIANEAL LOW CALCIUM (ULTRABAG) [Suspect]
     Indication: PERITONEAL DIALYSIS
     Route: 033

REACTIONS (2)
  - Haemoglobin decreased [Recovered/Resolved]
  - Pyrexia [Recovered/Resolved]
